FAERS Safety Report 9214926 (Version 1)
Quarter: 2013Q2

REPORT INFORMATION
  Report Type: Spontaneous
  Country: FR (occurrence: FR)
  Receive Date: 20130405
  Receipt Date: 20130405
  Transmission Date: 20140414
  Serious: Yes (Hospitalization)
  Sender: FDA-Public Use
  Company Number: FR-GLAXOSMITHKLINE-B0878951A

PATIENT
  Age: 69 Year
  Sex: Female

DRUGS (4)
  1. FLIXOTIDE [Suspect]
     Indication: PRODUCT USED FOR UNKNOWN INDICATION
     Route: 055
     Dates: start: 20130215, end: 20130305
  2. EFFEXOR [Suspect]
     Indication: PRODUCT USED FOR UNKNOWN INDICATION
     Dosage: 75MG PER DAY
     Route: 048
     Dates: start: 20130222, end: 20130305
  3. TETRAZEPAM [Suspect]
     Indication: PRODUCT USED FOR UNKNOWN INDICATION
     Route: 048
     Dates: start: 20130222, end: 20130305
  4. ALPRAZOLAM [Concomitant]
     Indication: PRODUCT USED FOR UNKNOWN INDICATION
     Dosage: .125MG TWICE PER DAY
     Route: 048
     Dates: start: 20130222, end: 20130227

REACTIONS (7)
  - Hyponatraemia [Recovered/Resolved]
  - Confusional state [Recovered/Resolved]
  - Grand mal convulsion [Recovered/Resolved]
  - Somnolence [Recovered/Resolved]
  - Blood osmolarity decreased [Recovered/Resolved]
  - Psychomotor retardation [Recovered/Resolved]
  - Anxiety [Unknown]
